FAERS Safety Report 23995816 (Version 3)
Quarter: 2024Q3

REPORT INFORMATION
  Report Type: Report from Study
  Country: JP (occurrence: JP)
  Receive Date: 20240620
  Receipt Date: 20240912
  Transmission Date: 20241016
  Serious: Yes (Death)
  Sender: DAIICHI
  Company Number: JP-DSJP-DSJ-2023-131639

PATIENT
  Age: 85 Year
  Sex: Male
  Weight: 61 kg

DRUGS (3)
  1. EDOXABAN TOSYLATE [Suspect]
     Active Substance: EDOXABAN TOSYLATE
     Indication: Atrial fibrillation
     Dosage: 15 MG, QD
     Route: 065
     Dates: start: 20230701, end: 20230902
  2. APIXABAN [Concomitant]
     Active Substance: APIXABAN
     Indication: Atrial fibrillation
     Dosage: 5MG/DAY
     Route: 065
     Dates: end: 20230604
  3. APIXABAN [Concomitant]
     Active Substance: APIXABAN
     Dosage: 2.5 MG, BID
     Route: 065
     Dates: start: 20230605, end: 20230630

REACTIONS (1)
  - Death [Fatal]

NARRATIVE: CASE EVENT DATE: 20230902
